FAERS Safety Report 19648711 (Version 1)
Quarter: 2021Q3

REPORT INFORMATION
  Report Type: Spontaneous
  Country: US (occurrence: US)
  Receive Date: 20210803
  Receipt Date: 20210803
  Transmission Date: 20211014
  Serious: No
  Sender: FDA-Public Use
  Company Number: US-STRIDES ARCOLAB LIMITED-2021SP006330

PATIENT
  Age: 41 Year
  Sex: Male
  Weight: 102.49 kg

DRUGS (3)
  1. EMTRICITABINE AND TENOFOVIR DISOPROXIL [Suspect]
     Active Substance: EMTRICITABINE\TENOFOVIR DISOPROXIL
     Indication: PROPHYLAXIS
     Dosage: UNK (GILEAD TRUVADA)
     Route: 065
  2. EMTRICITABINE AND TENOFOVIR DISOPROXIL [Suspect]
     Active Substance: EMTRICITABINE\TENOFOVIR DISOPROXIL
     Dosage: UNK, (SWITCHED TO GILEAD TRUVADA)
     Route: 065
  3. EMTRICITABINE AND TENOFOVIR DISOPROXIL [Suspect]
     Active Substance: EMTRICITABINE\TENOFOVIR DISOPROXIL
     Dosage: 1 TABLETS PER DAY
     Route: 048
     Dates: start: 20210603, end: 20210606

REACTIONS (3)
  - Diarrhoea [Recovered/Resolved]
  - Heart rate increased [Recovered/Resolved]
  - Vomiting [Recovered/Resolved]

NARRATIVE: CASE EVENT DATE: 20210603
